FAERS Safety Report 18598936 (Version 1)
Quarter: 2020Q4

REPORT INFORMATION
  Report Type: Spontaneous
  Country: IT (occurrence: IT)
  Receive Date: 20201210
  Receipt Date: 20201210
  Transmission Date: 20210114
  Serious: Yes (Hospitalization)
  Sender: FDA-Public Use
  Company Number: IT-SUN PHARMACEUTICAL INDUSTRIES LTD-2020RR-270654

PATIENT
  Age: 41 Year
  Sex: Male

DRUGS (4)
  1. ALCOVER  (OXYBATE SODIUM) [Suspect]
     Active Substance: SODIUM OXYBATE
     Indication: DRUG ABUSE
     Dosage: 9 MILLIGRAM, IN TOTAL
     Route: 048
     Dates: start: 20201029, end: 20201029
  2. VATRAN 5 MG COMPRESSE [Suspect]
     Active Substance: DIAZEPAM
     Indication: DRUG ABUSE
     Dosage: 120 MILLIGRAM, IN TOTAL
     Route: 048
     Dates: start: 20201029, end: 20201029
  3. LEXOTAN 2,5 MG/ML GOCCE ORALI SOLUZIONE [Suspect]
     Active Substance: BROMAZEPAM
     Indication: DRUG ABUSE
     Dosage: 40 MILLILITER, IN TOTAL
     Route: 048
     Dates: start: 20201029, end: 20201029
  4. SERTRALINE [Suspect]
     Active Substance: SERTRALINE HYDROCHLORIDE
     Indication: DRUG ABUSE
     Dosage: 1.4 GRAM, IN TOTAL
     Route: 048
     Dates: start: 20201029, end: 20201029

REACTIONS (2)
  - Drug abuse [Recovered/Resolved]
  - Abdominal pain upper [Recovered/Resolved]

NARRATIVE: CASE EVENT DATE: 20201029
